FAERS Safety Report 20963531 (Version 1)
Quarter: 2022Q2

REPORT INFORMATION
  Report Type: Spontaneous
  Country: IT (occurrence: IT)
  Receive Date: 20220615
  Receipt Date: 20220615
  Transmission Date: 20220721
  Serious: Yes (Other)
  Sender: FDA-Public Use
  Company Number: IT-MYLANLABS-2022M1044956

PATIENT
  Age: 46 Year
  Sex: Male

DRUGS (3)
  1. CLOZAPINE [Suspect]
     Active Substance: CLOZAPINE
     Indication: Psychotic symptom
     Dosage: UNK
  2. CLOZAPINE [Suspect]
     Active Substance: CLOZAPINE
     Indication: Nervous system disorder
  3. CLOZAPINE [Suspect]
     Active Substance: CLOZAPINE
     Indication: Somatic symptom disorder

REACTIONS (3)
  - Ileus paralytic [Unknown]
  - Seizure [Unknown]
  - Drug ineffective [Unknown]
